FAERS Safety Report 8756443 (Version 2)
Quarter: 2013Q1

REPORT INFORMATION
  Report Type: Spontaneous
  Country: JP (occurrence: None)
  Receive Date: 20120814
  Receipt Date: 20121213
  Transmission Date: 20140127
  Serious: Yes (Hospitalization, Other)
  Sender: FDA-Public Use
  Company Number: 2010JP007509

PATIENT
  Age: 36 Year
  Sex: Male
  Weight: 75.4 kg

DRUGS (14)
  1. TACROLIMUS [Suspect]
     Indication: LUPUS NEPHRITIS
     Route: 048
     Dates: start: 20110817, end: 20120105
  2. PREDNISOLONE [Concomitant]
  3. OMEPRAZOLE [Concomitant]
  4. ACTONEL (RISEDRONATE SODIUM) [Concomitant]
  5. WARFARIN [Concomitant]
  6. PURSENNID (SENNOSIDE A+B) [Concomitant]
  7. TAKEPRON (LANSOPRAZOLE) [Concomitant]
  8. PREDNISOLONE SODIUM SUCCINATE [Concomitant]
  9. BENIDIPINE HYDROCHLORIDE [Concomitant]
  10. OLMETEC (OLMESARTAN MEDOXOMIL) [Concomitant]
  11. CRAVIT (LEVOFLOXACIN) [Concomitant]
  12. BLOSTAR M (FAMOTIDINE) [Concomitant]
  13. ARTIST (CARVEDILOL) [Concomitant]
  14. PACETCOOL (CEFOTIAM HYDROCHLORIDE) [Concomitant]

REACTIONS (6)
  - Hypertension [None]
  - Periproctitis [None]
  - Mesenteric panniculitis [None]
  - Left ventricular hypertrophy [None]
  - Constipation [None]
  - Lupus enteritis [None]
